FAERS Safety Report 8188024-2 (Version None)
Quarter: 2012Q1

REPORT INFORMATION
  Report Type: 
  Country: None (occurrence: None)
  Receive Date: 20120306
  Receipt Date: 20120221
  Transmission Date: 20120608
  Serious: Yes (Hospitalization, Other)
  Sender: FDA-Public Use
  Company Number: CA-WATSON-2012-03253

PATIENT
  Age: 43 Year
  Sex: Male

DRUGS (2)
  1. TOPIRAMATE [Suspect]
     Indication: COMPLEX PARTIAL SEIZURES
     Dosage: 25 MG, BID
     Route: 065
  2. TOPIRAMATE [Suspect]
     Indication: CEREBRAL PALSY

REACTIONS (4)
  - HEMIPARESIS [None]
  - GAIT DISTURBANCE [None]
  - FATIGUE [None]
  - DYSARTHRIA [None]
